FAERS Safety Report 6276631-3 (Version None)
Quarter: 2009Q3

REPORT INFORMATION
  Report Type: 
  Country: None (occurrence: None)
  Receive Date: 20090722
  Receipt Date: 20080730
  Transmission Date: 20100115
  Serious: No
  Sender: FDA-Public Use
  Company Number: US-BRISTOL-MYERS SQUIBB COMPANY-14236574

PATIENT
  Age: 33 Year
  Sex: Female
  Weight: 132 kg

DRUGS (4)
  1. COUMADIN [Suspect]
     Indication: THROMBOSIS
     Dosage: 1 DOSAGE FORM = 11.5MG 1XWK + 7.5MG 6XWK STARTED ON NOV-2005 AT 5 MG/D DOSE INCREASED DEC-2006
     Dates: start: 20051101
  2. LOVENOX [Suspect]
     Indication: THROMBOSIS
  3. TOPROL-XL [Concomitant]
  4. GLUCOPHAGE [Concomitant]

REACTIONS (7)
  - ANAEMIA [None]
  - CHEST PAIN [None]
  - FEELING ABNORMAL [None]
  - HAEMATURIA [None]
  - HEADACHE [None]
  - PAIN IN EXTREMITY [None]
  - PREGNANCY [None]
